FAERS Safety Report 24659533 (Version 2)
Quarter: 2024Q4

REPORT INFORMATION
  Report Type: Report from Study
  Country: US (occurrence: US)
  Receive Date: 20241125
  Receipt Date: 20241126
  Transmission Date: 20250115
  Serious: No
  Sender: BRISTOL-MYERS SQUIBB COMPANY
  Company Number: US-BRISTOL-MYERS SQUIBB COMPANY-2024-184033

PATIENT
  Age: 75 Year
  Sex: Female
  Weight: 65.32 kg

DRUGS (4)
  1. ELIQUIS [Suspect]
     Active Substance: APIXABAN
     Indication: Arterial thrombosis
     Dosage: DOSE : 5MG TABLET;     FREQ : 1 TABLET TWICE A DAY
     Route: 048
     Dates: start: 202406
  2. ELIQUIS [Suspect]
     Active Substance: APIXABAN
     Dosage: DOSE : 5MG TABLET;     FREQ : 1 TABLET TWICE A DAY
     Route: 048
     Dates: start: 202406
  3. ELIQUIS [Suspect]
     Active Substance: APIXABAN
     Dosage: DOSE : 5MG TABLET;     FREQ : 1 TABLET TWICE A DAY
     Route: 048
     Dates: start: 20241118
  4. OMEPRAZOLE [Concomitant]
     Active Substance: OMEPRAZOLE
     Indication: Product used for unknown indication

REACTIONS (4)
  - Headache [Recovering/Resolving]
  - Alopecia [Unknown]
  - Skin burning sensation [Unknown]
  - Epistaxis [Unknown]

NARRATIVE: CASE EVENT DATE: 20240101
